FAERS Safety Report 6409513-4 (Version None)
Quarter: 2009Q4

REPORT INFORMATION
  Report Type: 
  Country: None (occurrence: None)
  Receive Date: 20091016
  Receipt Date: 20091006
  Transmission Date: 20100525
  Serious: Yes (Other)
  Sender: FDA-Public Use
  Company Number: 2009US000595

PATIENT
  Age: 28 Year
  Sex: Female
  Weight: 61.7 kg

DRUGS (5)
  1. PROGRAF [Suspect]
     Indication: RENAL TRANSPLANT
     Dosage: 4 MG, BID, ORAL; 5 MG; BID; ORAL
     Route: 048
  2. UMMUNOSUPPRESSIVE AGENTS [Concomitant]
  3. CELLECPT (MYCOPHENOLATE MOFETIL) [Concomitant]
  4. PREDNISONE TAB [Concomitant]
  5. K-PHOS (POTASSIUM PHOSPHATE MONOBASIC) [Concomitant]

REACTIONS (4)
  - DRUG EXPOSURE DURING PREGNANCY [None]
  - PREGNANCY [None]
  - PREMATURE LABOUR [None]
  - STILLBIRTH [None]
